FAERS Safety Report 9214868 (Version 2)
Quarter: 2013Q4

REPORT INFORMATION
  Report Type: Spontaneous
  Country: US (occurrence: US)
  Receive Date: 20130405
  Receipt Date: 20131009
  Transmission Date: 20140711
  Serious: Yes (Other)
  Sender: FDA-Public Use
  Company Number: US-GLAXOSMITHKLINE-A1017695A

PATIENT
  Age: 55 Year
  Sex: Female

DRUGS (9)
  1. PAXIL [Suspect]
     Indication: ANXIETY
     Dosage: 5MG PER DAY
     Route: 065
     Dates: start: 1998
  2. PAROXETINE CR [Suspect]
     Indication: ANXIETY
     Dosage: 40MG PER DAY
     Route: 048
  3. PAROXETINE [Suspect]
     Indication: ANXIETY
     Route: 065
  4. TAMOXIFEN [Suspect]
  5. WELLBUTRIN [Concomitant]
  6. EFFEXOR [Concomitant]
  7. ARIMIDEX [Concomitant]
  8. XANAX [Concomitant]
  9. LUNESTA [Concomitant]

REACTIONS (15)
  - Mental impairment [Not Recovered/Not Resolved]
  - Road traffic accident [Unknown]
  - Drug withdrawal syndrome [Unknown]
  - Ill-defined disorder [Unknown]
  - Aggression [Unknown]
  - Adverse event [Unknown]
  - Weight increased [Unknown]
  - Paraesthesia [Unknown]
  - Tremor [Unknown]
  - Feeling abnormal [Unknown]
  - Gait disturbance [Unknown]
  - Anxiety [Unknown]
  - Mood altered [Unknown]
  - Drug administration error [Unknown]
  - Labelled drug-drug interaction medication error [Unknown]
